FAERS Safety Report 9695044 (Version 2)
Quarter: 2014Q1

REPORT INFORMATION
  Report Type: Spontaneous
  Country: JP (occurrence: JP)
  Receive Date: 20131119
  Receipt Date: 20140113
  Transmission Date: 20141002
  Serious: Yes (Hospitalization, Other)
  Sender: FDA-Public Use
  Company Number: PHHY2013JP130827

PATIENT
  Age: 83 Year
  Sex: Male

DRUGS (1)
  1. ZOMETA [Suspect]
     Indication: METASTASES TO BONE
     Dosage: 4 MG, UNK
     Dates: start: 20090601, end: 201108

REACTIONS (5)
  - Tubulointerstitial nephritis [Recovering/Resolving]
  - Metabolic acidosis [Unknown]
  - Fanconi syndrome [Unknown]
  - Normochromic normocytic anaemia [Unknown]
  - Osteonecrosis of jaw [Recovering/Resolving]
